FAERS Safety Report 9731771 (Version 2)
Quarter: 2014Q1

REPORT INFORMATION
  Report Type: Spontaneous
  Country: JP (occurrence: JP)
  Receive Date: 20131204
  Receipt Date: 20140116
  Transmission Date: 20141002
  Serious: Yes (Other)
  Sender: FDA-Public Use
  Company Number: PHHY2013JP140608

PATIENT
  Age: 76 Year
  Sex: Male

DRUGS (4)
  1. ZOMETA [Suspect]
     Indication: METASTASES TO BONE
     Dosage: 4 MG, PER ADMINISTRATION
     Route: 041
     Dates: start: 20100708, end: 20101003
  2. LEUPLIN [Concomitant]
     Dosage: 11.25 MG, UNK
     Route: 058
     Dates: start: 20100805
  3. BICALUTAMIDE [Concomitant]
     Dosage: 80 MG, UNK
     Route: 048
     Dates: start: 20100805
  4. DECADRON [Concomitant]
     Dosage: 1 MG, UNK
     Route: 048

REACTIONS (8)
  - Osteonecrosis of jaw [Not Recovered/Not Resolved]
  - Osteomyelitis [Not Recovered/Not Resolved]
  - Exposed bone in jaw [Unknown]
  - Impaired healing [Unknown]
  - Primary sequestrum [Unknown]
  - Bone lesion [Unknown]
  - Erythema [Unknown]
  - Swelling [Unknown]
